FAERS Safety Report 9293196 (Version 5)
Quarter: 2014Q4

REPORT INFORMATION
  Report Type: Spontaneous
  Country: US (occurrence: US)
  Receive Date: 20130516
  Receipt Date: 20141103
  Transmission Date: 20150529
  Serious: Yes (Hospitalization, Other)
  Sender: FDA-Public Use
  Company Number: US-009507513-1305USA009293

PATIENT
  Sex: Male
  Weight: 142.86 kg

DRUGS (2)
  1. PROPECIA [Suspect]
     Active Substance: FINASTERIDE
     Indication: ALOPECIA
     Dosage: 1 MG, UNK
     Route: 048
     Dates: start: 2004, end: 2005
  2. GLUCOPHAGE [Concomitant]
     Active Substance: METFORMIN HYDROCHLORIDE
     Indication: DIABETES MELLITUS
     Dosage: UNK
     Dates: start: 199808

REACTIONS (15)
  - Muscle spasms [Unknown]
  - Penis injury [Unknown]
  - Hormone level abnormal [Unknown]
  - Hypothyroidism [Unknown]
  - Libido decreased [Unknown]
  - Myocardial infarction [Unknown]
  - Aspartate aminotransferase increased [Unknown]
  - Thrombosis [Unknown]
  - Nervous system disorder [Unknown]
  - Hypertension [Unknown]
  - Obesity [Unknown]
  - Rotator cuff syndrome [Unknown]
  - Erectile dysfunction [Not Recovered/Not Resolved]
  - Diabetes mellitus [Unknown]
  - Male sexual dysfunction [Not Recovered/Not Resolved]

NARRATIVE: CASE EVENT DATE: 2004
